FAERS Safety Report 23161888 (Version 1)
Quarter: 2023Q4

REPORT INFORMATION
  Report Type: Spontaneous
  Country: CZ (occurrence: CZ)
  Receive Date: 20231109
  Receipt Date: 20231109
  Transmission Date: 20240109
  Serious: Yes (Other)
  Sender: FDA-Public Use
  Company Number: CZ-STRIDES ARCOLAB LIMITED-2023SP016559

PATIENT
  Age: 70 Year
  Sex: Male

DRUGS (2)
  1. TACROLIMUS [Suspect]
     Active Substance: TACROLIMUS
     Indication: Immunosuppressant drug therapy
     Dosage: UNK, A SET DOSE OF TACROLIMUS ON THE SEVENTH POST-OPERATIVE DAY
     Route: 065
  2. TACROLIMUS [Suspect]
     Active Substance: TACROLIMUS
     Indication: Arterial graft

REACTIONS (3)
  - Intentional product misuse [Unknown]
  - Treatment noncompliance [Unknown]
  - Off label use [Unknown]
